FAERS Safety Report 23848458 (Version 1)
Quarter: 2024Q2

REPORT INFORMATION
  Report Type: Spontaneous
  Country: AU (occurrence: AU)
  Receive Date: 20240513
  Receipt Date: 20240513
  Transmission Date: 20240716
  Serious: Yes (Other)
  Sender: FDA-Public Use
  Company Number: AU-GILEAD-2024-0671911

PATIENT
  Age: 68 Year
  Sex: Male

DRUGS (1)
  1. BIKTARVY [Suspect]
     Active Substance: BICTEGRAVIR SODIUM\EMTRICITABINE\TENOFOVIR ALAFENAMIDE FUMARATE
     Indication: Acquired immunodeficiency syndrome
     Dosage: UNK
     Route: 065
     Dates: start: 2020

REACTIONS (10)
  - Hip arthroplasty [Unknown]
  - Altered state of consciousness [Unknown]
  - Seizure [Unknown]
  - Androgen deficiency [Unknown]
  - Gait disturbance [Not Recovered/Not Resolved]
  - Impaired fasting glucose [Unknown]
  - Gastrooesophageal reflux disease [Unknown]
  - Prostatomegaly [Unknown]
  - Hyperlipidaemia [Unknown]
  - Lipoatrophy [Unknown]

NARRATIVE: CASE EVENT DATE: 20210101
